FAERS Safety Report 21492966 (Version 4)
Quarter: 2022Q4

REPORT INFORMATION
  Report Type: Spontaneous
  Country: FR (occurrence: FR)
  Receive Date: 20221021
  Receipt Date: 20221111
  Transmission Date: 20230113
  Serious: Yes (Hospitalization)
  Sender: FDA-Public Use
  Company Number: None

PATIENT
  Age: 66 Year
  Sex: Female
  Weight: 95 kg

DRUGS (8)
  1. ALDACTONE [Suspect]
     Active Substance: SPIRONOLACTONE
     Dosage: 1 DF, 1X/DAY , 1 TABLET IN THE MORNING
     Route: 048
     Dates: start: 20210225, end: 20210227
  2. AMLODIPINE BESYLATE [Suspect]
     Active Substance: AMLODIPINE BESYLATE
     Dosage: UNK
     Route: 048
     Dates: start: 20210303
  3. ATENOLOL [Suspect]
     Active Substance: ATENOLOL
     Dosage: UNK, 2 TABLET
     Route: 048
     Dates: start: 20210309, end: 20210309
  4. IOMERON [Suspect]
     Active Substance: IOMEPROL
     Indication: Computerised tomogram
     Dosage: UNK, SINGLE [1 INJECTION SINGLE]
     Route: 042
     Dates: start: 20210309
  5. NITROGLYCERIN [Suspect]
     Active Substance: NITROGLYCERIN
     Dosage: 1 DF, SINGLE [1 TABLET  SINGLE]
     Route: 048
     Dates: start: 20210309, end: 20210309
  6. GLIMEPIRIDE ACCORD HEALTHCARE [Concomitant]
     Dosage: 4 MG, 2X/DAY [MORNING AND EVENING]
     Route: 048
  7. HYDROCHLOROTHIAZIDE\IRBESARTAN [Concomitant]
     Active Substance: HYDROCHLOROTHIAZIDE\IRBESARTAN
     Dosage: 1 DF, 1X/DAY [IN THE EVENING]
     Route: 048
  8. NEBIVOLOL HYDROCHLORIDE [Concomitant]
     Active Substance: NEBIVOLOL HYDROCHLORIDE
     Dosage: 5 MG, 1X/DAY , [1 TABLET IN THE EVENING]
     Route: 048
     Dates: end: 20210325

REACTIONS (2)
  - Rash maculo-papular [Recovered/Resolved]
  - Polyuria [Recovered/Resolved]

NARRATIVE: CASE EVENT DATE: 20210227
